FAERS Safety Report 23018044 (Version 2)
Quarter: 2024Q3

REPORT INFORMATION
  Report Type: Spontaneous
  Country: US (occurrence: US)
  Receive Date: 20231003
  Receipt Date: 20240731
  Transmission Date: 20241016
  Serious: No
  Sender: LUPIN
  Company Number: US-LUPIN PHARMACEUTICALS INC.-2023-08362

PATIENT

DRUGS (1)
  1. CEPHALEXIN [Suspect]
     Active Substance: CEPHALEXIN
     Indication: Localised infection
     Dosage: 1 DOSAGE FORM, TID
     Route: 048
     Dates: start: 20230909

REACTIONS (8)
  - Vulvovaginal pruritus [Unknown]
  - Skin exfoliation [Unknown]
  - Vulvovaginal discomfort [Unknown]
  - Vaginal haemorrhage [Unknown]
  - Vaginal disorder [Unknown]
  - Micturition disorder [Unknown]
  - Product label issue [Unknown]
  - Product formulation issue [Unknown]

NARRATIVE: CASE EVENT DATE: 20230901
